FAERS Safety Report 4830396-8 (Version None)
Quarter: 2005Q4

REPORT INFORMATION
  Report Type: 
  Country: None (occurrence: None)
  Receive Date: 20051114
  Receipt Date: 20051028
  Transmission Date: 20060501
  Serious: Yes (Hospitalization)
  Sender: FDA-Public Use
  Company Number: 2005US001559

PATIENT
  Age: 54 Year
  Sex: Female
  Weight: 59 kg

DRUGS (4)
  1. PROGRAF [Suspect]
     Indication: PROPHYLAXIS AGAINST TRANSPLANT REJECTION
     Dosage: 4.00 MG, BID, ORAL
     Route: 048
     Dates: start: 20030831
  2. PROGRAF [Suspect]
     Indication: PROPHYLAXIS AGAINST TRANSPLANT REJECTION
     Dosage: 4.00 MG, BID, ORAL
     Route: 048
     Dates: start: 20041004
  3. CELLCEPT [Concomitant]
  4. PREDNISONE [Concomitant]

REACTIONS (1)
  - PYELONEPHRITIS [None]
